FAERS Safety Report 7723659-X (Version None)
Quarter: 2011Q3

REPORT INFORMATION
  Report Type: 
  Country: None (occurrence: None)
  Receive Date: 20110901
  Receipt Date: 20110810
  Transmission Date: 20111222
  Serious: Yes (Disabling)
  Sender: FDA-Public Use
  Company Number: FR-TEVA-286849ISR

PATIENT
  Sex: Male

DRUGS (7)
  1. RAMIPRIL [Suspect]
     Indication: INFARCTION
     Dosage: 2.5 MILLIGRAM; 2,5 AND 5 MG EVERY OTHER DAY
     Route: 048
     Dates: start: 20110101
  2. RAMIPRIL [Suspect]
     Indication: STENT PLACEMENT
     Dosage: 5 MILLIGRAM; 2,5 AND 5 MG EVERY OTHER DAY
     Dates: start: 20110101
  3. SIMVASTATIN [Suspect]
     Dosage: 20 MILLIGRAM;
     Route: 048
  4. RAMIPRIL [Suspect]
     Indication: INFARCTION
     Dosage: 2.5 MILLIGRAM; 2,5 AND 5 MG EVERY OTHER DAY
     Dates: start: 20110101
  5. TENORMIN [Concomitant]
     Dosage: 50 MILLIGRAM;
     Route: 048
  6. RAMIPRIL [Suspect]
     Indication: STENT PLACEMENT
     Dosage: 5 MILLIGRAM; 2,5 AND 5 MG EVERY OTHER DAY
     Dates: start: 20110101
  7. ASPIRIN [Concomitant]
     Dosage: 75 MILLIGRAM;
     Route: 048

REACTIONS (4)
  - MEMORY IMPAIRMENT [None]
  - WEIGHT DECREASED [None]
  - ASTHENIA [None]
  - BURNOUT SYNDROME [None]
